FAERS Safety Report 4667340-2 (Version None)
Quarter: 2005Q2

REPORT INFORMATION
  Report Type: 
  Country: None (occurrence: None)
  Receive Date: 20050502
  Receipt Date: 20050217
  Transmission Date: 20051028
  Serious: Yes (Other)
  Sender: FDA-Public Use
  Company Number: PHEH2005US02199

PATIENT
  Age: 81 Year
  Sex: Male

DRUGS (3)
  1. LOTREL [Suspect]
     Indication: HYPERTENSION
     Dosage: 5/20 MG, QD, ORAL
     Route: 048
     Dates: start: 20010101, end: 20030701
  2. LIPITOR [Concomitant]
  3. AMLODIPINE [Concomitant]

REACTIONS (1)
  - SWELLING FACE [None]
